FAERS Safety Report 12964606 (Version 1)
Quarter: 2016Q4

REPORT INFORMATION
  Report Type: Not Available
  Country: None (occurrence: US)
  Receive Date: 20161122
  Receipt Date: 20161122
  Transmission Date: 20170207
  Serious: No
  Sender: FDA-Public Use
  Company Number: US-AKORN-41119

PATIENT
  Sex: Female

DRUGS (1)
  1. PROGESTERONE CAPSULES 100MG [Suspect]
     Active Substance: PROGESTERONE

REACTIONS (3)
  - Abdominal pain upper [Unknown]
  - Vomiting [Unknown]
  - Malaise [Unknown]
